FAERS Safety Report 24524973 (Version 1)
Quarter: 2024Q4

REPORT INFORMATION
  Report Type: Spontaneous
  Country: PR (occurrence: PR)
  Receive Date: 20241019
  Receipt Date: 20241019
  Transmission Date: 20250115
  Serious: No
  Sender: ABBVIE
  Company Number: PR-ABBVIE-5969495

PATIENT

DRUGS (1)
  1. VRAYLAR [Suspect]
     Active Substance: CARIPRAZINE
     Indication: Bipolar I disorder
     Route: 048

REACTIONS (1)
  - Akathisia [Recovered/Resolved]
